FAERS Safety Report 15624106 (Version 2)
Quarter: 2018Q4

REPORT INFORMATION
  Report Type: Report from Study
  Country: BR (occurrence: BR)
  Receive Date: 20181116
  Receipt Date: 20181126
  Transmission Date: 20190205
  Serious: Yes (Hospitalization, Other)
  Sender: FDA-Public Use
  Company Number: BR-ROCHE-1559318

PATIENT
  Sex: Female
  Weight: 74 kg

DRUGS (3)
  1. ANGIPRESS (BRAZIL) [Concomitant]
  2. SYNTHROID [Concomitant]
     Active Substance: LEVOTHYROXINE SODIUM
  3. ACTEMRA [Suspect]
     Active Substance: TOCILIZUMAB
     Indication: RHEUMATOID ARTHRITIS
     Route: 042
     Dates: start: 20150304

REACTIONS (8)
  - Swelling [Unknown]
  - Ill-defined disorder [Unknown]
  - Gait disturbance [Unknown]
  - Thrombosis [Unknown]
  - Diverticulitis [Unknown]
  - Pain [Unknown]
  - Infection [Unknown]
  - Renal atrophy [Unknown]
